FAERS Safety Report 10136911 (Version 2)
Quarter: 2014Q3

REPORT INFORMATION
  Report Type: Spontaneous
  Country: US (occurrence: None)
  Receive Date: 20140425
  Receipt Date: 20140722
  Transmission Date: 20150326
  Serious: Yes (Hospitalization, Other)
  Sender: FDA-Public Use
  Company Number: UTC-047250

PATIENT
  Age: 18 Month
  Sex: Male

DRUGS (2)
  1. REVATIO [Concomitant]
     Active Substance: SILDENAFIL CITRATE
  2. REMODULIN [Suspect]
     Active Substance: TREPROSTINIL
     Indication: PULMONARY HYPERTENSION
     Route: 058
     Dates: start: 20121108

REACTIONS (2)
  - Rhinovirus infection [None]
  - Dehydration [None]

NARRATIVE: CASE EVENT DATE: 20140405
